FAERS Safety Report 7113214-7 (Version None)
Quarter: 2010Q4

REPORT INFORMATION
  Report Type: 
  Country: None (occurrence: None)
  Receive Date: 20101119
  Receipt Date: 20091218
  Transmission Date: 20110411
  Serious: No
  Sender: FDA-Public Use
  Company Number: A0835931A

PATIENT
  Sex: Female

DRUGS (4)
  1. WELLBUTRIN SR [Suspect]
     Indication: ANXIETY
     Dosage: 150MG PER DAY
     Route: 048
     Dates: start: 20081101
  2. BUSPIRONE HCL [Concomitant]
  3. REMERON [Concomitant]
  4. NEXIUM [Concomitant]

REACTIONS (3)
  - DEPRESSED MOOD [None]
  - DRUG INEFFECTIVE [None]
  - TREMOR [None]
